FAERS Safety Report 16894778 (Version 1)
Quarter: 2019Q4

REPORT INFORMATION
  Report Type: Spontaneous
  Country: US (occurrence: US)
  Receive Date: 20191007
  Receipt Date: 20191007
  Transmission Date: 20200122
  Serious: Yes (Other)
  Sender: FDA-Public Use
  Company Number: None

PATIENT
  Age: 47 Year
  Sex: Female
  Weight: 65.25 kg

DRUGS (2)
  1. VENLAFAXINE HCL ER 37.5 MG CAPS [Suspect]
     Active Substance: VENLAFAXINE HYDROCHLORIDE
     Indication: DEPRESSION
     Dosage: ?          QUANTITY:1 CAPSULE(S);?
     Route: 048
  2. VENLAFAXINE HCL ER 37.5 MG CAPS [Suspect]
     Active Substance: VENLAFAXINE HYDROCHLORIDE
     Indication: ANXIETY
     Dosage: ?          QUANTITY:1 CAPSULE(S);?
     Route: 048

REACTIONS (11)
  - Therapy cessation [None]
  - Confusional state [None]
  - Psychomotor hyperactivity [None]
  - Palpitations [None]
  - Amnesia [None]
  - Panic disorder [None]
  - Tremor [None]
  - Chills [None]
  - Anxiety [None]
  - Sensory disturbance [None]
  - Muscular weakness [None]

NARRATIVE: CASE EVENT DATE: 20191007
